FAERS Safety Report 17191175 (Version 1)
Quarter: 2019Q4

REPORT INFORMATION
  Report Type: Spontaneous
  Country: FR (occurrence: FR)
  Receive Date: 20191223
  Receipt Date: 20191223
  Transmission Date: 20200122
  Serious: Yes (Other)
  Sender: FDA-Public Use
  Company Number: FR-PFIZER INC-2019545216

PATIENT
  Age: 76 Year
  Sex: Male

DRUGS (3)
  1. PACLITAXEL HOSPIRA [Suspect]
     Active Substance: PACLITAXEL
     Indication: BRONCHIAL NEOPLASM
     Dosage: 156 MG, CYCLIC
     Route: 041
     Dates: start: 20191029, end: 20191029
  2. SOLUPRED [METHYLPREDNISOLONE SODIUM SUCCINATE] [Concomitant]
     Active Substance: METHYLPREDNISOLONE SODIUM SUCCINATE
     Indication: PREMEDICATION
     Dosage: UNK
     Route: 048
     Dates: start: 20191028
  3. CARBOPLATINE HOSPIRA [Suspect]
     Active Substance: CARBOPLATIN
     Indication: BRONCHIAL NEOPLASM
     Dosage: 230 MG, CYCLIC
     Route: 041
     Dates: start: 20191029, end: 20191029

REACTIONS (1)
  - Rash maculo-papular [Recovered/Resolved]

NARRATIVE: CASE EVENT DATE: 201910
